FAERS Safety Report 4923283-8 (Version None)
Quarter: 2006Q1

REPORT INFORMATION
  Report Type: 
  Country: None (occurrence: None)
  Receive Date: 20060227
  Receipt Date: 20050930
  Transmission Date: 20060701
  Serious: Yes (Hospitalization)
  Sender: FDA-Public Use
  Company Number: US-MERCK-0510USA02081

PATIENT
  Age: 48 Year
  Sex: Female
  Weight: 95 kg

DRUGS (11)
  1. VIOXX [Suspect]
     Indication: PAIN
     Route: 048
     Dates: start: 20000413, end: 20030213
  2. AMBIEN [Concomitant]
     Indication: SLEEP DISORDER THERAPY
     Route: 065
  3. VIOXX [Suspect]
     Indication: ARTHRITIS
     Route: 048
     Dates: start: 20000413, end: 20030213
  4. AVANDIA [Concomitant]
     Indication: DIABETES MELLITUS
     Route: 065
  5. FLUDROCORTISONE [Concomitant]
     Indication: BLOOD PRESSURE
     Route: 065
  6. GLUCOTROL [Concomitant]
     Indication: DIABETES MELLITUS
     Route: 065
  7. HUMULIN [Concomitant]
     Indication: DIABETES MELLITUS
     Route: 065
  8. LEVOXYL [Concomitant]
     Indication: HYPERTHYROIDISM
     Route: 065
  9. PREMPRO [Concomitant]
     Indication: HORMONE LEVEL ABNORMAL
     Route: 065
  10. PRILOSEC [Concomitant]
     Indication: GASTRIC DISORDER
     Route: 065
  11. RANITIDINE [Concomitant]
     Indication: DYSPEPSIA
     Route: 065

REACTIONS (2)
  - JOINT SWELLING [None]
  - MYOCARDIAL INFARCTION [None]
